FAERS Safety Report 5552557-5 (Version None)
Quarter: 2007Q4

REPORT INFORMATION
  Report Type: 
  Country: None (occurrence: None)
  Receive Date: 20071130
  Receipt Date: 20071120
  Transmission Date: 20080405
  Serious: Yes (Other)
  Sender: FDA-Public Use
  Company Number: CHPA2007US12533

PATIENT
  Age: 6 Year
  Sex: Male
  Weight: 19 kg

DRUGS (1)
  1. DEXTROMETHORPHAN HYDROBROMIDE [Suspect]
     Dosage: LESS THAN 2 TEASPOONS, ORAL
     Route: 048

REACTIONS (1)
  - RESPIRATION ABNORMAL [None]
